FAERS Safety Report 25939252 (Version 2)
Quarter: 2025Q4

REPORT INFORMATION
  Report Type: Spontaneous
  Country: US (occurrence: US)
  Receive Date: 20251020
  Receipt Date: 20251030
  Transmission Date: 20260118
  Serious: No
  Sender: ROCHE
  Company Number: US-ROCHE-10000408129

PATIENT
  Age: 68 Year
  Sex: Female

DRUGS (2)
  1. ACTEMRA [Suspect]
     Active Substance: TOCILIZUMAB
     Indication: Rheumatoid arthritis
     Route: 058
     Dates: start: 20250930
  2. ACTEMRA [Suspect]
     Active Substance: TOCILIZUMAB
     Route: 058
     Dates: start: 20251002

REACTIONS (5)
  - Needle issue [Unknown]
  - Underdose [Unknown]
  - Visual impairment [Unknown]
  - Accidental exposure to product [Unknown]
  - Thrombosis [Unknown]

NARRATIVE: CASE EVENT DATE: 20250930
